FAERS Safety Report 16938137 (Version 1)
Quarter: 2019Q4

REPORT INFORMATION
  Report Type: Spontaneous
  Country: CN (occurrence: CN)
  Receive Date: 20191018
  Receipt Date: 20191018
  Transmission Date: 20200122
  Serious: Yes (Other)
  Sender: FDA-Public Use
  Company Number: NVSC2019CN005019

PATIENT
  Age: 66 Year
  Sex: Male

DRUGS (2)
  1. NIVOLUMAB [Suspect]
     Active Substance: NIVOLUMAB
     Indication: PANCREATIC CARCINOMA METASTATIC
     Dosage: UNK
     Route: 065
     Dates: start: 201803, end: 201804
  2. TRAMETINIB [Suspect]
     Active Substance: TRAMETINIB
     Indication: PANCREATIC CARCINOMA METASTATIC
     Dosage: 2 MG, QD
     Route: 065
     Dates: start: 201803, end: 201804

REACTIONS (3)
  - Product use in unapproved indication [Unknown]
  - Pancreatic carcinoma metastatic [Unknown]
  - Malignant neoplasm progression [Unknown]
